FAERS Safety Report 9879640 (Version 2)
Quarter: 2014Q1

REPORT INFORMATION
  Report Type: Spontaneous
  Country: US (occurrence: US)
  Receive Date: 20140206
  Receipt Date: 20140206
  Transmission Date: 20141002
  Serious: Yes (Other)
  Sender: FDA-Public Use
  Company Number: US-RB-051086-13

PATIENT
  Sex: Female
  Weight: 100 kg

DRUGS (6)
  1. SUBOXONE FILM [Suspect]
     Indication: DRUG DEPENDENCE
     Dosage: SUBOXONE FILM;
     Route: 060
     Dates: start: 201102, end: 201307
  2. NICOTINE [Concomitant]
     Indication: PRODUCT USED FOR UNKNOWN INDICATION
     Dosage: SMOKES 10 CIGARETTES PER DAY
     Route: 055
  3. BUDEPRION XL [Concomitant]
     Indication: DEPRESSION
     Route: 048
     Dates: start: 20110830, end: 20130218
  4. CLONAZEPAM [Concomitant]
     Indication: ANXIETY
     Route: 048
     Dates: start: 20111018, end: 20130218
  5. IBUPROFEN [Concomitant]
     Indication: BACK PAIN
     Route: 048
     Dates: start: 20110203, end: 20130218
  6. RISPERIDONE [Concomitant]
     Indication: INSOMNIA
     Route: 048
     Dates: start: 20121212, end: 20130117

REACTIONS (2)
  - Maternal exposure during pregnancy [Recovered/Resolved]
  - Abortion spontaneous [Recovered/Resolved]
